FAERS Safety Report 9023371 (Version 1)
Quarter: 2013Q1

REPORT INFORMATION
  Report Type: Report from Study
  Country: CA (occurrence: CA)
  Receive Date: 20130117
  Receipt Date: 20130117
  Transmission Date: 20140127
  Serious: Yes (Hospitalization)
  Sender: FDA-Public Use
  Company Number: CA-JNJFOC-20130105227

PATIENT
  Age: 44 None
  Sex: Female
  Weight: 63.8 kg

DRUGS (1)
  1. REMICADE [Suspect]
     Indication: CROHN^S DISEASE
     Route: 042
     Dates: start: 20071228

REACTIONS (4)
  - Gastroenteritis [Unknown]
  - Colitis ulcerative [Unknown]
  - Dehydration [Unknown]
  - Hypokalaemia [Not Recovered/Not Resolved]
